FAERS Safety Report 7353244-3 (Version None)
Quarter: 2011Q1

REPORT INFORMATION
  Report Type: 
  Country: None (occurrence: None)
  Receive Date: 20110310
  Receipt Date: 20110310
  Transmission Date: 20110831
  Serious: No
  Sender: FDA-Public Use
  Company Number: None

PATIENT
  Age: 51 Year
  Sex: Female

DRUGS (8)
  1. FRANKINCENSE OIL [Suspect]
     Dates: start: 20060201, end: 20060801
  2. NIXIA RED (WOLFBERRY) [Suspect]
     Dates: start: 20060101, end: 20060801
  3. AVAPRO [Suspect]
     Dates: start: 20060728, end: 20060801
  4. INSULIN [Concomitant]
  5. ACETAMINOPHEN [Concomitant]
  6. LAVENDER OIL [Suspect]
     Dates: start: 20060201, end: 20060801
  7. MULTI-VITAMINS [Concomitant]
  8. MOTRIN [Concomitant]

REACTIONS (6)
  - LIVER INJURY [None]
  - BLOOD ALKALINE PHOSPHATASE INCREASED [None]
  - ASPARTATE AMINOTRANSFERASE INCREASED [None]
  - DECREASED APPETITE [None]
  - ALANINE AMINOTRANSFERASE INCREASED [None]
  - PYREXIA [None]
